FAERS Safety Report 9436041 (Version 1)
Quarter: 2013Q3

REPORT INFORMATION
  Report Type: Spontaneous
  Country: KR (occurrence: KR)
  Receive Date: 20130801
  Receipt Date: 20130801
  Transmission Date: 20140515
  Serious: Yes (Other)
  Sender: FDA-Public Use
  Company Number: KR-ACTAVIS-2013-13108

PATIENT
  Age: 57 Year
  Sex: Male

DRUGS (3)
  1. PACLITAXEL (UNKNOWN) [Suspect]
     Indication: LUNG ADENOCARCINOMA STAGE IV
     Dosage: 175 MG/M2, UNK
     Route: 065
  2. BEVACIZUMAB [Concomitant]
     Indication: LUNG ADENOCARCINOMA STAGE IV
     Dosage: UNK
     Route: 042
  3. CARBOPLATIN [Concomitant]
     Indication: LUNG ADENOCARCINOMA STAGE IV
     Dosage: UNK
     Route: 065

REACTIONS (1)
  - Cystoid macular oedema [Recovering/Resolving]
